FAERS Safety Report 15949084 (Version 5)
Quarter: 2019Q2

REPORT INFORMATION
  Report Type: Spontaneous
  Country: US (occurrence: US)
  Receive Date: 20190211
  Receipt Date: 20190402
  Transmission Date: 20190711
  Serious: Yes (Other)
  Sender: FDA-Public Use
  Company Number: US-BIOGEN-2019BI00693984

PATIENT
  Sex: Female

DRUGS (3)
  1. TYSABRI [Suspect]
     Active Substance: NATALIZUMAB
     Route: 065
     Dates: end: 201811
  2. TYSABRI [Suspect]
     Active Substance: NATALIZUMAB
     Indication: MULTIPLE SCLEROSIS
     Dosage: INFUSED FOR OVER 1 HOUR
     Route: 050
     Dates: start: 20110719, end: 20170727
  3. TYSABRI [Suspect]
     Active Substance: NATALIZUMAB
     Dosage: INFUSED FOR OVER 1 HOUR
     Route: 050
     Dates: start: 20180511

REACTIONS (32)
  - Sepsis [Recovered/Resolved]
  - Pain [Unknown]
  - Muscle spasms [Unknown]
  - Gastrointestinal infection [Not Recovered/Not Resolved]
  - Product dose omission [Not Recovered/Not Resolved]
  - Agitation [Unknown]
  - Depressed mood [Unknown]
  - Infectious pleural effusion [Unknown]
  - Pneumonia [Unknown]
  - Fatigue [Unknown]
  - Tooth infection [Recovered/Resolved]
  - Pulmonary oedema [Unknown]
  - Muscle rupture [Not Recovered/Not Resolved]
  - Influenza [Recovered/Resolved]
  - Nervousness [Unknown]
  - Asthenia [Unknown]
  - Upper respiratory tract infection [Unknown]
  - Gastrointestinal disorder [Unknown]
  - Malaise [Unknown]
  - Motor dysfunction [Unknown]
  - Fall [Recovered/Resolved]
  - Hypokinesia [Not Recovered/Not Resolved]
  - Frustration tolerance decreased [Unknown]
  - Sinusitis [Unknown]
  - Respiratory tract infection viral [Unknown]
  - Inadequate aseptic technique in use of product [Unknown]
  - Nasopharyngitis [Unknown]
  - Pulmonary fibrosis [Not Recovered/Not Resolved]
  - Lung perforation [Unknown]
  - Vein disorder [Not Recovered/Not Resolved]
  - Ear infection [Unknown]
  - Mobility decreased [Unknown]

NARRATIVE: CASE EVENT DATE: 2018
